FAERS Safety Report 9438614 (Version 1)
Quarter: 2013Q3

REPORT INFORMATION
  Report Type: Spontaneous
  Country: IE (occurrence: IE)
  Receive Date: 20130802
  Receipt Date: 20130802
  Transmission Date: 20140515
  Serious: Yes (Hospitalization)
  Sender: FDA-Public Use
  Company Number: IE-BIOMARINAP-IE-2013-101214

PATIENT
  Age: 40 Year
  Sex: Male

DRUGS (4)
  1. ALDURAZYME [Suspect]
     Indication: MUCOPOLYSACCHARIDOSIS I
     Dosage: 4000 IU, QW
     Route: 041
  2. WARFARIN [Concomitant]
     Indication: PRODUCT USED FOR UNKNOWN INDICATION
  3. DIGOXIN [Concomitant]
     Indication: PRODUCT USED FOR UNKNOWN INDICATION
  4. FUROSEMIDE [Concomitant]
     Indication: PRODUCT USED FOR UNKNOWN INDICATION

REACTIONS (1)
  - Hernia [Recovered/Resolved]
